FAERS Safety Report 23166894 (Version 1)
Quarter: 2023Q4

REPORT INFORMATION
  Report Type: Spontaneous
  Country: FR (occurrence: FR)
  Receive Date: 20231109
  Receipt Date: 20231109
  Transmission Date: 20240110
  Serious: Yes (Hospitalization)
  Sender: FDA-Public Use
  Company Number: FR-AFSSAPS-PP2023001067

PATIENT
  Age: 42 Year
  Sex: Male
  Weight: 78 kg

DRUGS (4)
  1. PAROXETINE [Interacting]
     Active Substance: PAROXETINE
     Indication: Tourette^s disorder
     Dosage: 10MG 1 TIME PER DAY
     Route: 048
     Dates: start: 202301, end: 20230508
  2. RISPERIDONE [Interacting]
     Active Substance: RISPERIDONE
     Indication: Tourette^s disorder
     Dosage: 1 MG 3 TIMES PER DAY
     Route: 048
     Dates: start: 202301, end: 20230508
  3. TROPATEPINE HYDROCHLORIDE [Interacting]
     Active Substance: TROPATEPINE HYDROCHLORIDE
     Indication: Product used for unknown indication
     Dosage: 1 MG 3 TIMES PER DAY
     Route: 048
     Dates: end: 20230508
  4. LOXAPINE [Interacting]
     Active Substance: LOXAPINE
     Indication: Tourette^s disorder
     Dosage: 25MG 2 TIMES A DAY
     Route: 048
     Dates: start: 202301, end: 20230508

REACTIONS (4)
  - Pyrexia [Recovering/Resolving]
  - Confusional state [Recovering/Resolving]
  - Confusional state [Recovering/Resolving]
  - Rhabdomyolysis [Recovering/Resolving]

NARRATIVE: CASE EVENT DATE: 20230504
